FAERS Safety Report 22537849 (Version 1)
Quarter: 2023Q2

REPORT INFORMATION
  Report Type: Report from Study
  Country: GB (occurrence: US)
  Receive Date: 20230608
  Receipt Date: 20230608
  Transmission Date: 20230722
  Serious: Yes (Hospitalization, Other)
  Sender: FDA-Public Use
  Company Number: 2023A128318

PATIENT

DRUGS (2)
  1. OLAPARIB [Suspect]
     Active Substance: OLAPARIB
     Indication: Non-small cell lung cancer
     Route: 048
     Dates: start: 20230526
  2. OLAPARIB [Suspect]
     Active Substance: OLAPARIB
     Indication: Non-small cell lung cancer
     Route: 048
     Dates: start: 20230528

REACTIONS (2)
  - Haematemesis [Recovering/Resolving]
  - Vomiting [Recovering/Resolving]

NARRATIVE: CASE EVENT DATE: 20230529
